FAERS Safety Report 10895278 (Version 1)
Quarter: 2015Q1

REPORT INFORMATION
  Report Type: Report from Study
  Country: US (occurrence: US)
  Receive Date: 20150306
  Receipt Date: 20150306
  Transmission Date: 20150721
  Serious: Yes (Life-Threatening, Hospitalization)
  Sender: FDA-Public Use
  Company Number: US-TEVA-545911USA

PATIENT
  Age: 19 Year
  Sex: Female
  Weight: 73.6 kg

DRUGS (2)
  1. TRETINOIN. [Suspect]
     Active Substance: TRETINOIN
     Dosage: LAST ADMINISTERED DATE 02-SEP-2012
     Route: 048
     Dates: start: 20120820, end: 20120902
  2. TRISENOX [Suspect]
     Active Substance: ARSENIC TRIOXIDE
     Dosage: LAST ADMINISTERED DATE 31-AUG-2012
     Route: 042
     Dates: start: 20120820, end: 20120921

REACTIONS (1)
  - Hypercalcaemia [Recovering/Resolving]

NARRATIVE: CASE EVENT DATE: 20120902
